FAERS Safety Report 20045456 (Version 1)
Quarter: 2021Q4

REPORT INFORMATION
  Report Type: Spontaneous
  Country: CA (occurrence: CA)
  Receive Date: 20211108
  Receipt Date: 20211108
  Transmission Date: 20220303
  Serious: Yes (Hospitalization)
  Sender: FDA-Public Use
  Company Number: CA-TEVA-2021-CA-1973176

PATIENT
  Age: 55 Year
  Sex: Female

DRUGS (4)
  1. VENLAFAXINE HYDROCHLORIDE [Suspect]
     Active Substance: VENLAFAXINE HYDROCHLORIDE
     Indication: Major depression
     Route: 048
  2. CANNABIDIOL\HERBALS [Concomitant]
     Active Substance: CANNABIDIOL\HERBALS
  3. TRAZODONE [Concomitant]
     Active Substance: TRAZODONE HYDROCHLORIDE
  4. VAPORIZED CANNABIDIOL (CBD) OIL [Concomitant]

REACTIONS (10)
  - Diarrhoea [Unknown]
  - Dry eye [Unknown]
  - Hyperhidrosis [Unknown]
  - Migraine [Unknown]
  - Quality of life decreased [Unknown]
  - Suicide attempt [Unknown]
  - Vision blurred [Unknown]
  - Vomiting [Unknown]
  - Product formulation issue [Unknown]
  - Product substitution issue [Unknown]
